FAERS Safety Report 8385260-7 (Version None)
Quarter: 2012Q2

REPORT INFORMATION
  Report Type: 
  Country: None (occurrence: None)
  Receive Date: 20120525
  Receipt Date: 20120514
  Transmission Date: 20120825
  Serious: No
  Sender: FDA-Public Use
  Company Number: US-BIOGENIDEC-2012BI017029

PATIENT
  Sex: Female

DRUGS (5)
  1. TOPIRAMATE [Concomitant]
     Indication: CONVULSION PROPHYLAXIS
  2. AMLODIPINE BESYLATE [Concomitant]
     Indication: HYPERTENSION
  3. TYSABRI [Suspect]
     Indication: MULTIPLE SCLEROSIS
     Route: 042
     Dates: start: 20090610
  4. CLONIDINE [Concomitant]
     Indication: HYPERTENSION
  5. METOPROLOL [Concomitant]
     Indication: HYPERTENSION

REACTIONS (11)
  - LIP INJURY [None]
  - MOUTH INJURY [None]
  - DEPRESSION [None]
  - HYPOTHYROIDISM [None]
  - VITAMIN D DEFICIENCY [None]
  - PAIN IN EXTREMITY [None]
  - FALL [None]
  - MULTIPLE SCLEROSIS RELAPSE [None]
  - MEMORY IMPAIRMENT [None]
  - MULTIPLE SCLEROSIS [None]
  - BALANCE DISORDER [None]
